FAERS Safety Report 23367915 (Version 2)
Quarter: 2024Q1

REPORT INFORMATION
  Report Type: Report from Study
  Country: US (occurrence: US)
  Receive Date: 20240104
  Receipt Date: 20240113
  Transmission Date: 20240410
  Serious: Yes (Other)
  Sender: FDA-Public Use
  Company Number: US-JAZZ PHARMACEUTICALS-2023-US-025370

PATIENT
  Sex: Male

DRUGS (12)
  1. XYWAV [Suspect]
     Active Substance: CALCIUM OXYBATE\MAGNESIUM OXYBATE\POTASSIUM OXYBATE\SODIUM OXYBATE
     Indication: Hypersomnia
     Dosage: 4.25 GRAM, BID
     Dates: start: 20231016
  2. MONTELUKAST SODIUM [Concomitant]
     Active Substance: MONTELUKAST SODIUM
     Dosage: 0000
     Dates: start: 20230201
  3. GABAPENTIN [Concomitant]
     Active Substance: GABAPENTIN
     Dosage: 0000
     Dates: start: 20230501
  4. MIRAPEX [Concomitant]
     Active Substance: PRAMIPEXOLE DIHYDROCHLORIDE
     Dosage: 0000
     Dates: start: 20231012
  5. DOVATO [Concomitant]
     Active Substance: DOLUTEGRAVIR SODIUM\LAMIVUDINE
     Dosage: UNK
     Dates: start: 20231012
  6. MAGNESIUM GLUCONATE [Concomitant]
     Active Substance: MAGNESIUM GLUCONATE
     Dosage: 0000
     Dates: start: 20231012
  7. ARMODAFINIL [Concomitant]
     Active Substance: ARMODAFINIL
     Dosage: 200 MILLIGRAM
     Dates: start: 20230501
  8. ARMODAFINIL [Concomitant]
     Active Substance: ARMODAFINIL
     Dosage: 250 MILLIGRAM
     Dates: start: 20230821
  9. VITAMINS [Concomitant]
     Active Substance: VITAMINS
     Dosage: 0000
     Dates: start: 20221001
  10. ASPIRIN [Concomitant]
     Active Substance: ASPIRIN
     Dosage: UNK
     Dates: start: 20231222
  11. ROSUVASTATIN CALCIUM [Concomitant]
     Active Substance: ROSUVASTATIN CALCIUM
     Dosage: UNK
     Dates: start: 20231222
  12. CLOPIDOGREL [Concomitant]
     Active Substance: CLOPIDOGREL BISULFATE
     Dosage: UNK
     Dates: start: 20231222

REACTIONS (4)
  - Coronary artery occlusion [Unknown]
  - Malaise [Unknown]
  - Intentional product use issue [Unknown]
  - Intentional dose omission [Unknown]
